FAERS Safety Report 17502956 (Version 1)
Quarter: 2020Q1

REPORT INFORMATION
  Report Type: Spontaneous
  Country: IT (occurrence: IT)
  Receive Date: 20200305
  Receipt Date: 20200305
  Transmission Date: 20200409
  Serious: Yes (Death, Other)
  Sender: FDA-Public Use
  Company Number: IT-SA-2018SA129100

PATIENT
  Age: 61 Year
  Sex: Male

DRUGS (10)
  1. METHYLPREDNISOLONE. [Suspect]
     Active Substance: METHYLPREDNISOLONE
     Indication: IMMUNOSUPPRESSION
     Dosage: 20 MG,QD
     Route: 065
     Dates: start: 2016
  2. THYMOGLOBULIN [Suspect]
     Active Substance: LAPINE T-LYMPHOCYTE IMMUNE GLOBULIN
     Indication: GRAFT VERSUS HOST DISEASE IN SKIN
  3. TACROLIMUS. [Suspect]
     Active Substance: TACROLIMUS
     Dosage: .04 MG/KG,QD
     Route: 065
  4. THYMOGLOBULIN [Suspect]
     Active Substance: LAPINE T-LYMPHOCYTE IMMUNE GLOBULIN
     Indication: GRAFT VERSUS HOST DISEASE
     Dosage: 1.5 MG/KG, QD
     Dates: start: 2016
  5. EVEROLIMUS. [Suspect]
     Active Substance: EVEROLIMUS
     Indication: IMMUNOSUPPRESSION
     Dosage: 3 MG, QD
     Dates: start: 2016
  6. ETANERCEPT [Suspect]
     Active Substance: ETANERCEPT
     Indication: GRAFT VERSUS HOST DISEASE IN SKIN
  7. TACROLIMUS. [Suspect]
     Active Substance: TACROLIMUS
     Dosage: .08 MG/KG,QD
     Route: 065
  8. ETANERCEPT [Suspect]
     Active Substance: ETANERCEPT
     Indication: GRAFT VERSUS HOST DISEASE
     Dosage: 50 MG,QW
     Route: 058
     Dates: start: 2016
  9. METHYLPREDNISOLONE. [Suspect]
     Active Substance: METHYLPREDNISOLONE
     Dosage: 40 MG,QD
     Route: 065
  10. TACROLIMUS. [Suspect]
     Active Substance: TACROLIMUS
     Indication: IMMUNOSUPPRESSION
     Dosage: 0.075 MG/KG, QD
     Dates: start: 2016

REACTIONS (21)
  - Haemoglobin decreased [Recovering/Resolving]
  - Systemic inflammatory response syndrome [Not Recovered/Not Resolved]
  - Enteritis [Unknown]
  - Malnutrition [Unknown]
  - Graft versus host disease [Recovering/Resolving]
  - Platelet count decreased [Recovering/Resolving]
  - Enterococcal infection [Unknown]
  - Septic shock [Fatal]
  - Sepsis [Fatal]
  - Leukopenia [Recovering/Resolving]
  - Pyrexia [Not Recovered/Not Resolved]
  - Diarrhoea [Unknown]
  - Acute graft versus host disease in skin [Not Recovered/Not Resolved]
  - Rash [Not Recovered/Not Resolved]
  - Eczema [Not Recovered/Not Resolved]
  - Intestinal haemorrhage [Unknown]
  - Parakeratosis [Not Recovered/Not Resolved]
  - Aspergillus infection [Unknown]
  - Graft versus host disease in gastrointestinal tract [Unknown]
  - Cytomegalovirus infection [Unknown]
  - Multiple organ dysfunction syndrome [Fatal]

NARRATIVE: CASE EVENT DATE: 2016
